FAERS Safety Report 25268412 (Version 1)
Quarter: 2025Q2

REPORT INFORMATION
  Report Type: Spontaneous
  Country: CA (occurrence: None)
  Receive Date: 20250503
  Receipt Date: 20250503
  Transmission Date: 20250716
  Serious: Yes (Hospitalization, Disabling, Other)
  Sender: FDA-CTU
  Company Number: None

PATIENT
  Age: 27 Year
  Sex: Female
  Weight: 67.05 kg

DRUGS (5)
  1. VYVANSE [Suspect]
     Active Substance: LISDEXAMFETAMINE DIMESYLATE
     Indication: Attention deficit hyperactivity disorder
     Dates: start: 20210810, end: 20221130
  2. INVEGA [Concomitant]
     Active Substance: PALIPERIDONE
  3. VENTOLIN [Concomitant]
     Active Substance: ALBUTEROL SULFATE
  4. FLOVENT [Concomitant]
     Active Substance: FLUTICASONE PROPIONATE
  5. Materna vitamin [Concomitant]

REACTIONS (4)
  - Therapy cessation [None]
  - Hypophagia [None]
  - Weight decreased [None]
  - Disturbance in social behaviour [None]

NARRATIVE: CASE EVENT DATE: 20220508
